FAERS Safety Report 20579280 (Version 2)
Quarter: 2022Q3

REPORT INFORMATION
  Report Type: Spontaneous
  Country: US (occurrence: US)
  Receive Date: 20220310
  Receipt Date: 20220712
  Transmission Date: 20221027
  Serious: No
  Sender: FDA-Public Use
  Company Number: US-PFIZER INC-202100975614

PATIENT
  Age: 79 Year
  Sex: Female

DRUGS (2)
  1. XELJANZ [Suspect]
     Active Substance: TOFACITINIB CITRATE
     Dosage: 5 MG
     Route: 048
     Dates: start: 20210512
  2. XELJANZ [Suspect]
     Active Substance: TOFACITINIB CITRATE
     Dosage: 5 MG (1 TABLET ONE DAY ALTERNATING WITH TWO TABLETS THE NEXT DAY)
     Route: 048

REACTIONS (4)
  - Off label use [Unknown]
  - Diarrhoea [Unknown]
  - Arthralgia [Unknown]
  - Pain [Recovering/Resolving]
